FAERS Safety Report 12900894 (Version 1)
Quarter: 2016Q4

REPORT INFORMATION
  Report Type: Spontaneous
  Country: US (occurrence: US)
  Receive Date: 20161101
  Receipt Date: 20161101
  Transmission Date: 20170207
  Serious: Yes (Other)
  Sender: FDA-Public Use
  Company Number: PHEH2016US028165

PATIENT
  Age: 68 Year
  Sex: Female

DRUGS (4)
  1. LETROZOLE. [Suspect]
     Active Substance: LETROZOLE
     Indication: INFLAMMATORY CARCINOMA OF THE BREAST
     Dosage: 2.5 MG, QD
     Route: 065
     Dates: start: 20160314
  2. PALBOCICLIB [Suspect]
     Active Substance: PALBOCICLIB
     Indication: BREAST CANCER STAGE IV
     Dosage: 125 MG, QD
     Route: 065
     Dates: start: 20160314
  3. LETROZOLE. [Suspect]
     Active Substance: LETROZOLE
     Indication: BREAST CANCER STAGE IV
  4. PALBOCICLIB [Suspect]
     Active Substance: PALBOCICLIB
     Indication: INFLAMMATORY CARCINOMA OF THE BREAST
     Dosage: 75 MG, QD
     Route: 065

REACTIONS (1)
  - Febrile neutropenia [Recovering/Resolving]
